FAERS Safety Report 9808983 (Version 3)
Quarter: 2014Q2

REPORT INFORMATION
  Report Type: Spontaneous
  Country: US (occurrence: US)
  Receive Date: 20140110
  Receipt Date: 20140530
  Transmission Date: 20141212
  Serious: Yes (Hospitalization)
  Sender: FDA-Public Use
  Company Number: US-GLAXOSMITHKLINE-A1030115A

PATIENT
  Sex: Female
  Weight: 122.3 kg

DRUGS (1)
  1. AVANDIA [Suspect]
     Indication: DIABETES MELLITUS
     Dosage: 8MG PER DAY
     Route: 048
     Dates: start: 2006, end: 2008

REACTIONS (3)
  - Cerebrovascular accident [Unknown]
  - Coronary artery disease [Unknown]
  - Supraventricular tachycardia [Unknown]
